FAERS Safety Report 9564888 (Version 1)
Quarter: 2013Q3

REPORT INFORMATION
  Report Type: Spontaneous
  Country: US (occurrence: US)
  Receive Date: 20130930
  Receipt Date: 20130930
  Transmission Date: 20140515
  Serious: Yes (Other)
  Sender: FDA-Public Use
  Company Number: US-JNJFOC-20130914731

PATIENT
  Age: 14 Year
  Sex: Male

DRUGS (2)
  1. ITRACONAZOLE [Suspect]
     Indication: DERMATITIS ATOPIC
     Route: 048
  2. CYCLOSPORINE [Suspect]
     Indication: DERMATITIS ATOPIC
     Dosage: 5 MG/KG/D
     Route: 048

REACTIONS (8)
  - Memory impairment [Recovered/Resolved]
  - Learning disorder [Recovered/Resolved]
  - Neurotoxicity [Recovered/Resolved]
  - Mental impairment [Recovered/Resolved]
  - Dysgraphia [Recovered/Resolved]
  - Performance status decreased [Recovered/Resolved]
  - Off label use [Unknown]
  - Anxiety [Recovered/Resolved]
